FAERS Safety Report 10215127 (Version 2)
Quarter: 2014Q2

REPORT INFORMATION
  Report Type: Spontaneous
  Country: US (occurrence: US)
  Receive Date: 20140603
  Receipt Date: 20140603
  Transmission Date: 20141212
  Serious: Yes (Other)
  Sender: FDA-Public Use
  Company Number: US-BMSGILMSD-2014-0101490

PATIENT
  Sex: Female
  Weight: 71.66 kg

DRUGS (6)
  1. ATRIPLA [Suspect]
     Indication: HIV TEST POSITIVE
     Dosage: UNK
     Route: 048
     Dates: start: 2007
  2. OMEPRAZOLE [Concomitant]
     Indication: GASTROOESOPHAGEAL REFLUX DISEASE
     Dosage: UNK
  3. CELEXA                             /00582602/ [Concomitant]
     Indication: DEPRESSION
     Dosage: UNK
  4. SYMBICORT [Concomitant]
     Dosage: UNK
  5. ALBUTEROL                          /00139501/ [Concomitant]
     Dosage: UNK
  6. VITAMIN D3 [Concomitant]
     Indication: VITAMIN D DECREASED
     Dosage: UNK

REACTIONS (2)
  - Varices oesophageal [Unknown]
  - Portal hypertension [Not Recovered/Not Resolved]
